FAERS Safety Report 5834594-6 (Version None)
Quarter: 2008Q3

REPORT INFORMATION
  Report Type: 
  Country: None (occurrence: None)
  Receive Date: 20080805
  Receipt Date: 20080724
  Transmission Date: 20090109
  Serious: Yes (Hospitalization, Other)
  Sender: FDA-Public Use
  Company Number: CA-PFIZER INC-2008063465

PATIENT
  Age: 51 Year
  Sex: Male

DRUGS (2)
  1. CHANTIX [Suspect]
     Route: 048
     Dates: start: 20080619, end: 20080629
  2. NAPROXEN [Concomitant]
     Indication: PAIN

REACTIONS (3)
  - LOSS OF CONSCIOUSNESS [None]
  - SYNCOPE [None]
  - THROAT IRRITATION [None]
